FAERS Safety Report 13292491 (Version 1)
Quarter: 2017Q1

REPORT INFORMATION
  Report Type: Spontaneous
  Country: US (occurrence: US)
  Receive Date: 20170303
  Receipt Date: 20170303
  Transmission Date: 20170428
  Serious: Yes (Other)
  Sender: FDA-Public Use
  Company Number: None

PATIENT
  Age: 13 Year
  Sex: Female
  Weight: 48.12 kg

DRUGS (3)
  1. LEVALBUTEROL INHALED 45MCG [Suspect]
     Active Substance: LEVALBUTEROL TARTRATE
     Indication: ASTHMA
     Dosage: 4-6H
     Route: 055
     Dates: start: 20170208, end: 20170208
  2. XOPENEX [Suspect]
     Active Substance: LEVALBUTEROL HYDROCHLORIDE
  3. LEVABUTEROL INHALED 0.63MG/3ML SOL [Suspect]
     Active Substance: LEVALBUTEROL
     Indication: ASTHMA
     Dosage: VIAL 4-6H INHALED VIA NEBULIZER
     Route: 055
     Dates: start: 20170208, end: 20170208

REACTIONS (3)
  - Tremor [None]
  - Dizziness [None]
  - Respiratory rate increased [None]

NARRATIVE: CASE EVENT DATE: 20170208
